FAERS Safety Report 21672688 (Version 1)
Quarter: 2022Q4

REPORT INFORMATION
  Report Type: Spontaneous
  Country: US (occurrence: None)
  Receive Date: 20221201
  Receipt Date: 20221201
  Transmission Date: 20230113
  Serious: Yes (Hospitalization, Disabling)
  Sender: FDA-Public Use
  Company Number: None

PATIENT
  Age: 61 Year
  Sex: Male

DRUGS (13)
  1. ENVARSUS XR [Suspect]
     Active Substance: TACROLIMUS
     Indication: Renal transplant
     Dosage: FREQUENCY : DAILY;?
     Route: 048
     Dates: start: 20201003
  2. MYCOPHENOLATE MOFETIL [Suspect]
     Active Substance: MYCOPHENOLATE MOFETIL
     Dosage: FREQUENCY : TWICE A DAY;?
     Route: 048
     Dates: start: 20201003
  3. ENVARSUS XR [Concomitant]
     Active Substance: TACROLIMUS
  4. NIFEDIPINE [Concomitant]
     Active Substance: NIFEDIPINE
  5. LISINOPRIL [Concomitant]
     Active Substance: LISINOPRIL
  6. AMILORIDE [Concomitant]
     Active Substance: AMILORIDE
  7. FAMOTIDINE [Concomitant]
     Active Substance: FAMOTIDINE
  8. TAMSULOSIN [Concomitant]
     Active Substance: TAMSULOSIN
  9. dorzolomide-timolol [Concomitant]
  10. SODIUM BICARBONATE [Concomitant]
     Active Substance: SODIUM BICARBONATE
  11. prednisilone AC 1% ophth susp [Concomitant]
  12. brimonidine ophth sol [Concomitant]
  13. POLYETHYLENE GLYCOL [Concomitant]
     Active Substance: POLYETHYLENE GLYCOL

REACTIONS (1)
  - Hospitalisation [None]

NARRATIVE: CASE EVENT DATE: 20221130
